FAERS Safety Report 6161430-3 (Version None)
Quarter: 2009Q2

REPORT INFORMATION
  Report Type: 
  Country: None (occurrence: None)
  Receive Date: 20090417
  Receipt Date: 20090417
  Transmission Date: 20091009
  Serious: Yes (Other)
  Sender: FDA-Public Use
  Company Number: None

PATIENT
  Sex: Female
  Weight: 41.7309 kg

DRUGS (2)
  1. DRISDOL [Suspect]
     Indication: VITAMIN D ABNORMAL
     Dosage: 6/SOFTGELS 1-WEEKLY
     Dates: start: 20090307
  2. DRISDOL [Suspect]
     Indication: VITAMIN D ABNORMAL
     Dosage: 6/SOFTGELS 1-WEEKLY
     Dates: start: 20090316

REACTIONS (2)
  - CONFUSIONAL STATE [None]
  - HEADACHE [None]
